FAERS Safety Report 5381980-7 (Version None)
Quarter: 2007Q3

REPORT INFORMATION
  Report Type: 
  Country: None (occurrence: None)
  Receive Date: 20070709
  Receipt Date: 20070703
  Transmission Date: 20080115
  Serious: Yes (Other)
  Sender: FDA-Public Use
  Company Number: B0445348A

PATIENT
  Sex: Male

DRUGS (3)
  1. PAXIL [Suspect]
     Indication: DRUG USE FOR UNKNOWN INDICATION
     Route: 048
     Dates: start: 20060101
  2. GLYCYRRHIZIN [Suspect]
     Indication: DRUG USE FOR UNKNOWN INDICATION
     Route: 065
  3. DEPROMEL [Concomitant]
     Route: 048
     Dates: end: 20060101

REACTIONS (3)
  - HYPOKALAEMIA [None]
  - NAUSEA [None]
  - RENAL IMPAIRMENT [None]
